FAERS Safety Report 12592655 (Version 1)
Quarter: 2016Q3

REPORT INFORMATION
  Report Type: Spontaneous
  Country: BR (occurrence: BR)
  Receive Date: 20160726
  Receipt Date: 20160726
  Transmission Date: 20161109
  Serious: Yes (Other)
  Sender: FDA-Public Use
  Company Number: BR-AMGEN-BRASP2015125684

PATIENT
  Age: 47 Year
  Sex: Male
  Weight: 114 kg

DRUGS (21)
  1. ENALAPRIL [Concomitant]
     Active Substance: ENALAPRIL
     Dosage: 20 MG AT 2 PER DAY
  2. ENALAPRIL [Concomitant]
     Active Substance: ENALAPRIL
     Dosage: 20 MG AT 2 PER DAY
  3. ATENOLOL. [Concomitant]
     Active Substance: ATENOLOL
     Indication: HYPERTENSION
     Dosage: 50 MG AT 1 TABLET AND SOMETIMES HE TAKES HALF TABLET
     Route: 048
  4. SIMVASTATIN. [Concomitant]
     Active Substance: SIMVASTATIN
     Dosage: UNK
     Route: 048
  5. ACETYLSALICYLIC ACID [Concomitant]
     Active Substance: ASPIRIN
     Dosage: 1 TABLET PER DAY
     Route: 048
  6. ENBREL [Suspect]
     Active Substance: ETANERCEPT
     Indication: RHEUMATOID ARTHRITIS
     Dosage: 50 MG, WEEKLY
     Route: 058
     Dates: start: 2014, end: 2014
  7. ENALAPRIL [Concomitant]
     Active Substance: ENALAPRIL
     Indication: HYPERTENSION
     Dosage: 20 MG AT 2 PER DAY
  8. HYDROCHLOROTHIAZIDE. [Concomitant]
     Active Substance: HYDROCHLOROTHIAZIDE
     Indication: HYPERTENSION
     Dosage: 25 MG AT 1 PER DAY
  9. ACETYLSALICYLIC ACID [Concomitant]
     Active Substance: ASPIRIN
     Indication: CARDIAC DISORDER
     Dosage: 1 TABLET PER DAY
     Route: 048
  10. SIMVASTATIN. [Concomitant]
     Active Substance: SIMVASTATIN
     Dosage: UNK
     Route: 048
  11. ALLOPURINOL. [Concomitant]
     Active Substance: ALLOPURINOL
     Dosage: 100 MG 1 PER DAY
  12. SIMVASTATIN. [Concomitant]
     Active Substance: SIMVASTATIN
     Dosage: UNK
     Route: 048
  13. HYDROCHLOROTHIAZIDE. [Concomitant]
     Active Substance: HYDROCHLOROTHIAZIDE
     Dosage: 25 MG AT 1 PER DAY
  14. ALLOPURINOL. [Concomitant]
     Active Substance: ALLOPURINOL
     Dosage: 100 MG 1 PER DAY
  15. CEPHALEXIN                         /00145501/ [Concomitant]
     Active Substance: CEPHALEXIN
     Dosage: 500 MG, UNK
  16. HYDROCHLOROTHIAZIDE. [Concomitant]
     Active Substance: HYDROCHLOROTHIAZIDE
     Dosage: 25 MG AT 1 PER DAY
  17. ATENOLOL. [Concomitant]
     Active Substance: ATENOLOL
     Dosage: 50 MG AT 1 TABLET AND SOMETIMES HE TAKES HALF TABLET
     Route: 048
  18. HIDROMED [Concomitant]
     Active Substance: HYDROCHLOROTHIAZIDE
     Indication: HYPERTENSION
     Dosage: 25 MG, UNK
  19. ALLOPURINOL. [Concomitant]
     Active Substance: ALLOPURINOL
     Indication: BLOOD URIC ACID
     Dosage: 100 MG 1 PER DAY
  20. ACETYLSALICYLIC ACID [Concomitant]
     Active Substance: ASPIRIN
     Dosage: 1 TABLET PER DAY
     Route: 048
  21. ATENOLOL. [Concomitant]
     Active Substance: ATENOLOL
     Dosage: 50 MG AT 1 TABLET AND SOMETIMES HE TAKES HALF TABLET
     Route: 048

REACTIONS (4)
  - Diabetes mellitus [Unknown]
  - Spondylitis [Unknown]
  - Blindness [Recovering/Resolving]
  - Uveitis [Unknown]

NARRATIVE: CASE EVENT DATE: 2014
